FAERS Safety Report 16211341 (Version 1)
Quarter: 2019Q2

REPORT INFORMATION
  Report Type: Spontaneous
  Country: CA (occurrence: CA)
  Receive Date: 20190418
  Receipt Date: 20190418
  Transmission Date: 20190711
  Serious: Yes (Hospitalization, Other)
  Sender: FDA-Public Use
  Company Number: CA-AUROBINDO-AUR-APL-2019-020322

PATIENT

DRUGS (6)
  1. ETRAVIRINE [Interacting]
     Active Substance: ETRAVIRINE
     Indication: HIV INFECTION
     Dosage: 300 MILLIGRAM, FOUR TIMES/DAY
     Route: 048
  2. LAMIVUDINE. [Suspect]
     Active Substance: LAMIVUDINE
     Indication: HIV INFECTION
     Dosage: 300 MILLIGRAM, ONCE A DAY
     Route: 048
  3. DOLUTEGRAVIR [Interacting]
     Active Substance: DOLUTEGRAVIR
     Indication: HIV INFECTION
     Dosage: 100 MILLIGRAM, FOUR TIMES/DAY
     Route: 048
  4. TIPRANAVIR [Suspect]
     Active Substance: TIPRANAVIR
  5. RITONAVIR. [Interacting]
     Active Substance: RITONAVIR
     Indication: HIV INFECTION
     Dosage: UNK, TWO TIMES A DAY
     Route: 048
  6. FLUCONAZOLE. [Interacting]
     Active Substance: FLUCONAZOLE
     Indication: HIV INFECTION
     Dosage: 200 MILLIGRAM, ONCE A DAY
     Route: 048

REACTIONS (11)
  - Cytomegalovirus chorioretinitis [Unknown]
  - Drug resistance [Unknown]
  - Malabsorption [Unknown]
  - Off label use [Unknown]
  - Viraemia [Unknown]
  - Viral load increased [Unknown]
  - Gastrointestinal disorder [Unknown]
  - Mycobacterial infection [Unknown]
  - CD4 lymphocytes decreased [Unknown]
  - Opportunistic infection [Unknown]
  - Drug interaction [Unknown]
